FAERS Safety Report 16704029 (Version 4)
Quarter: 2019Q4

REPORT INFORMATION
  Report Type: Spontaneous
  Country: US (occurrence: US)
  Receive Date: 20190814
  Receipt Date: 20191129
  Transmission Date: 20200122
  Serious: Yes (Disabling, Other)
  Sender: FDA-Public Use
  Company Number: US-ASTRAZENECA-2019SF13949

PATIENT
  Age: 21744 Day
  Sex: Female
  Weight: 101.2 kg

DRUGS (64)
  1. NEXIUM [Suspect]
     Active Substance: ESOMEPRAZOLE MAGNESIUM
     Indication: GASTROOESOPHAGEAL REFLUX DISEASE
     Dosage: GENERIC
     Route: 048
     Dates: start: 20170829
  2. K-DUR [Concomitant]
     Active Substance: POTASSIUM CHLORIDE
     Indication: SUPPLEMENTATION THERAPY
  3. PREMARIN [Concomitant]
     Active Substance: ESTROGENS, CONJUGATED
     Indication: HORMONE THERAPY
  4. COLACE [Concomitant]
     Active Substance: DOCUSATE SODIUM
  5. ZOFRAN [Concomitant]
     Active Substance: ONDANSETRON HYDROCHLORIDE
  6. AURYXIA [Concomitant]
     Active Substance: TETRAFERRIC TRICITRATE DECAHYDRATE
  7. CLINDAMYCIN. [Concomitant]
     Active Substance: CLINDAMYCIN
     Indication: AFFECTIVE DISORDER
  8. TEKTURNA [Concomitant]
     Active Substance: ALISKIREN HEMIFUMARATE
  9. IMITREX [Concomitant]
     Active Substance: SUMATRIPTAN SUCCINATE
  10. NEXIUM [Suspect]
     Active Substance: ESOMEPRAZOLE MAGNESIUM
     Indication: GASTROOESOPHAGEAL REFLUX DISEASE
     Route: 048
     Dates: start: 20180419
  11. NEXIUM [Suspect]
     Active Substance: ESOMEPRAZOLE MAGNESIUM
     Indication: GASTROOESOPHAGEAL REFLUX DISEASE
     Dosage: GENERIC
     Route: 048
     Dates: start: 20130808
  12. PROTONIX [Suspect]
     Active Substance: PANTOPRAZOLE SODIUM
     Indication: GASTROOESOPHAGEAL REFLUX DISEASE
     Dosage: GENERIC
     Route: 065
     Dates: start: 2016, end: 2016
  13. RANITIDINE. [Concomitant]
     Active Substance: RANITIDINE
  14. CITALOPRAM [Concomitant]
     Active Substance: CITALOPRAM HYDROBROMIDE
  15. METFORMIN [Concomitant]
     Active Substance: METFORMIN HYDROCHLORIDE
  16. BACLOFEN. [Concomitant]
     Active Substance: BACLOFEN
  17. LORATADINE. [Concomitant]
     Active Substance: LORATADINE
  18. PROTONIX [Suspect]
     Active Substance: PANTOPRAZOLE SODIUM
     Indication: GASTROOESOPHAGEAL REFLUX DISEASE
     Route: 065
     Dates: start: 2005, end: 2008
  19. GLIPIZIDE. [Concomitant]
     Active Substance: GLIPIZIDE
     Indication: DIABETES MELLITUS
  20. LOSARTAN. [Concomitant]
     Active Substance: LOSARTAN
  21. FOLIC ACID. [Concomitant]
     Active Substance: FOLIC ACID
  22. ISOSORBIDE. [Concomitant]
     Active Substance: ISOSORBIDE
  23. BUPROPION. [Concomitant]
     Active Substance: BUPROPION
  24. PROBIOTIC [Concomitant]
     Active Substance: PROBIOTICS NOS
  25. COZAAR [Concomitant]
     Active Substance: LOSARTAN POTASSIUM
  26. ZITHROMAX [Concomitant]
     Active Substance: AZITHROMYCIN DIHYDRATE
  27. RENA-VITE [Concomitant]
     Active Substance: ASCORBIC ACID\BIOTIN\CALCIUM PANTOTHENATE\CYANOCOBALAMIN\FOLIC ACID\NIACINAMIDE\PYRIDOXINE HYDROCHLORIDE\RIBOFLAVIN\THIAMINE MONONITRATE
  28. BENZONATATE. [Concomitant]
     Active Substance: BENZONATATE
  29. FOSRENOL [Concomitant]
     Active Substance: LANTHANUM CARBONATE
  30. PROTONIX [Suspect]
     Active Substance: PANTOPRAZOLE SODIUM
     Indication: GASTROOESOPHAGEAL REFLUX DISEASE
     Dosage: GENERIC
     Route: 065
     Dates: start: 2010, end: 2011
  31. INSULIN [Concomitant]
     Active Substance: INSULIN NOS
  32. VALTREX [Concomitant]
     Active Substance: VALACYCLOVIR HYDROCHLORIDE
  33. PRAVASTATIN. [Concomitant]
     Active Substance: PRAVASTATIN
  34. VENOFER [Concomitant]
     Active Substance: IRON SUCROSE
  35. CEPHALEXIN. [Concomitant]
     Active Substance: CEPHALEXIN
  36. SERZONE [Concomitant]
     Active Substance: NEFAZODONE HYDROCHLORIDE
  37. LISINOPRIL. [Concomitant]
     Active Substance: LISINOPRIL
  38. WELCHOL [Concomitant]
     Active Substance: COLESEVELAM HYDROCHLORIDE
  39. VITAMIN C [Concomitant]
     Active Substance: ASCORBIC ACID
  40. NITROQUICK [Concomitant]
     Active Substance: NITROGLYCERIN
  41. EPOGEN [Concomitant]
     Active Substance: ERYTHROPOIETIN
  42. METOPROLOL SUCCINATE. [Concomitant]
     Active Substance: METOPROLOL SUCCINATE
  43. COD LIVER OIL [Concomitant]
     Active Substance: COD LIVER OIL
  44. NEXIUM [Suspect]
     Active Substance: ESOMEPRAZOLE MAGNESIUM
     Indication: GASTROOESOPHAGEAL REFLUX DISEASE
     Route: 048
     Dates: start: 2003
  45. NEXIUM [Suspect]
     Active Substance: ESOMEPRAZOLE MAGNESIUM
     Indication: GASTROOESOPHAGEAL REFLUX DISEASE
     Dosage: GENERIC
     Route: 048
     Dates: start: 20171005
  46. PRILOSEC [Suspect]
     Active Substance: OMEPRAZOLE MAGNESIUM
     Indication: GASTROOESOPHAGEAL REFLUX DISEASE
     Route: 048
     Dates: start: 1999, end: 2011
  47. WELLBUTRIN [Concomitant]
     Active Substance: BUPROPION HYDROCHLORIDE
     Indication: AFFECTIVE DISORDER
  48. PREDNISONE. [Concomitant]
     Active Substance: PREDNISONE
     Indication: STEROID THERAPY
  49. PAXIL [Concomitant]
     Active Substance: PAROXETINE HYDROCHLORIDE
     Indication: AFFECTIVE DISORDER
  50. METOCLOPRAMIDE. [Concomitant]
     Active Substance: METOCLOPRAMIDE
     Indication: GASTROINTESTINAL MOTILITY DISORDER
  51. FISH OIL [Concomitant]
     Active Substance: FISH OIL
  52. GABAPENTIN. [Concomitant]
     Active Substance: GABAPENTIN
  53. FLUTICASONE. [Concomitant]
     Active Substance: FLUTICASONE
  54. PROAIR HFA [Concomitant]
     Active Substance: ALBUTEROL SULFATE
  55. FENTANYL. [Concomitant]
     Active Substance: FENTANYL
  56. AMBIEN [Concomitant]
     Active Substance: ZOLPIDEM TARTRATE
     Indication: SLEEP DISORDER
  57. ATENOLOL. [Concomitant]
     Active Substance: ATENOLOL
  58. ZOCOR [Concomitant]
     Active Substance: SIMVASTATIN
  59. CYCLOBENZAPR [Concomitant]
     Active Substance: CYCLOBENZAPRINE
  60. CHLORTHALIDONE. [Concomitant]
     Active Substance: CHLORTHALIDONE
  61. MUPIROCIN. [Concomitant]
     Active Substance: MUPIROCIN
  62. VITAMIN D [Concomitant]
     Active Substance: VITAMIN D NOS
  63. LYRICA [Concomitant]
     Active Substance: PREGABALIN
     Indication: AFFECTIVE DISORDER
  64. CELEBREX [Concomitant]
     Active Substance: CELECOXIB

REACTIONS (6)
  - Chronic kidney disease-mineral and bone disorder [Unknown]
  - Nephrogenic anaemia [Unknown]
  - Chronic kidney disease [Not Recovered/Not Resolved]
  - Renal failure [Unknown]
  - Renal impairment [Unknown]
  - End stage renal disease [Unknown]

NARRATIVE: CASE EVENT DATE: 20101215
